FAERS Safety Report 21876771 (Version 2)
Quarter: 2023Q1

REPORT INFORMATION
  Report Type: Spontaneous
  Country: IT (occurrence: IT)
  Receive Date: 20230118
  Receipt Date: 20230323
  Transmission Date: 20230417
  Serious: Yes (Death, Hospitalization, Other)
  Sender: FDA-Public Use
  Company Number: IT-ALNYLAM PHARMACEUTICALS, INC.-ALN-2023-000194

PATIENT

DRUGS (10)
  1. ONPATTRO [Suspect]
     Active Substance: PATISIRAN SODIUM
     Indication: Hereditary neuropathic amyloidosis
     Dosage: UNK
     Route: 065
     Dates: start: 20221229
  2. Luvion [Concomitant]
     Indication: Product used for unknown indication
     Dosage: 50 MILLIGRAM; HALF TABLET
     Route: 065
  3. PANTOPRAZOLE SODIUM [Concomitant]
     Active Substance: PANTOPRAZOLE SODIUM
     Indication: Product used for unknown indication
     Dosage: 40 MILLIGRAM
     Route: 065
  4. LYRICA [Concomitant]
     Active Substance: PREGABALIN
     Indication: Product used for unknown indication
     Dosage: 150 MILLIGRAM, TID
     Route: 065
  5. BISOPROLOL FUMARATE [Concomitant]
     Active Substance: BISOPROLOL FUMARATE
     Indication: Product used for unknown indication
     Dosage: 2.5 MILLIGRAM
     Route: 065
  6. CYMBALTA [Concomitant]
     Active Substance: DULOXETINE HYDROCHLORIDE
     Indication: Product used for unknown indication
     Dosage: 60 MILLIGRAM
     Route: 065
  7. SILODOSIN [Concomitant]
     Active Substance: SILODOSIN
     Indication: Product used for unknown indication
     Dosage: 8 MILLIGRAM
     Route: 065
  8. TRAMADOL HYDROCHLORIDE [Concomitant]
     Active Substance: TRAMADOL HYDROCHLORIDE
     Indication: Product used for unknown indication
     Dosage: 5 GTT DROPS, PRN
     Route: 065
  9. AMIKACIN [Concomitant]
     Active Substance: AMIKACIN
     Indication: Product used for unknown indication
     Dosage: 500 MILLIGRAM, BID
     Route: 065
     Dates: start: 20221224, end: 20230105
  10. LEVOFLOXACIN [Concomitant]
     Active Substance: LEVOFLOXACIN
     Indication: Product used for unknown indication
     Dosage: 750 MILLIGRAM
     Route: 065
     Dates: start: 20221024

REACTIONS (7)
  - Blood pressure decreased [Fatal]
  - Cardiac arrest [Unknown]
  - Rectal haemorrhage [Unknown]
  - Diverticulum intestinal [Unknown]
  - Atelectasis [Unknown]
  - Bronchial obstruction [Unknown]
  - Pleural effusion [Unknown]

NARRATIVE: CASE EVENT DATE: 20221224
